FAERS Safety Report 4377233-6 (Version None)
Quarter: 2004Q2

REPORT INFORMATION
  Report Type: 
  Country: None (occurrence: None)
  Receive Date: 20040609
  Receipt Date: 20040325
  Transmission Date: 20050107
  Serious: No
  Sender: FDA-Public Use
  Company Number: 2004206524US

PATIENT
  Age: 39 Year
  Sex: Female

DRUGS (3)
  1. BEXTRA [Suspect]
     Indication: OVARIAN CYST
     Dosage: UNK
     Route: 065
     Dates: start: 20040324
  2. DARVOCET-N 100 [Suspect]
     Dosage: UNK
     Route: 065
  3. NAPROXEN [Concomitant]

REACTIONS (1)
  - MOOD ALTERED [None]
